FAERS Safety Report 6704481-X (Version None)
Quarter: 2010Q2

REPORT INFORMATION
  Report Type: 
  Country: None (occurrence: None)
  Receive Date: 20100430
  Receipt Date: 20100422
  Transmission Date: 20101027
  Serious: Yes (Hospitalization)
  Sender: FDA-Public Use
  Company Number: GXKR2010GB04572

PATIENT
  Age: 76 Year
  Sex: Female

DRUGS (2)
  1. OMEPRAZOLE [Suspect]
     Indication: ANALGESIC INTERVENTION SUPPORTIVE THERAPY
  2. FUROSEMIDE [Concomitant]
     Indication: GRAVITATIONAL OEDEMA

REACTIONS (7)
  - DECREASED APPETITE [None]
  - DIARRHOEA [None]
  - DIZZINESS [None]
  - FALL [None]
  - HYPOMAGNESAEMIA [None]
  - MOBILITY DECREASED [None]
  - NAUSEA [None]
